FAERS Safety Report 19163831 (Version 1)
Quarter: 2021Q2

REPORT INFORMATION
  Report Type: Spontaneous
  Country: US (occurrence: US)
  Receive Date: 20210420
  Receipt Date: 20210420
  Transmission Date: 20210717
  Serious: Yes (Hospitalization)
  Sender: FDA-Public Use
  Company Number: None

PATIENT
  Age: 67 Year
  Sex: Male

DRUGS (1)
  1. OPSUMIT [Suspect]
     Active Substance: MACITENTAN
     Indication: PULMONARY HYPERTENSION
     Route: 048
     Dates: start: 20160826, end: 20210210

REACTIONS (4)
  - Haemorrhoids [None]
  - Myelosuppression [None]
  - Gastritis [None]
  - Haemoglobin decreased [None]

NARRATIVE: CASE EVENT DATE: 20210208
